FAERS Safety Report 10103579 (Version 3)
Quarter: 2014Q2

REPORT INFORMATION
  Report Type: Report from Study
  Country: KR (occurrence: KR)
  Receive Date: 20140424
  Receipt Date: 20140617
  Transmission Date: 20141212
  Serious: Yes (Hospitalization)
  Sender: FDA-Public Use
  Company Number: KR-DSJP-DSJ-2014-105708

PATIENT
  Sex: 0

DRUGS (6)
  1. OLMESARTAN-HCTZ [Suspect]
     Indication: HYPERTENSION
     Dosage: 20/12.5 MG, QD
     Route: 048
     Dates: start: 20140320, end: 20140416
  2. MOSAPRIDE CITRATE [Concomitant]
     Indication: ANTACID THERAPY
     Dosage: 15 MG, QD
     Route: 048
     Dates: start: 20111201
  3. ASTRIX [Concomitant]
     Indication: THROMBOSIS PROPHYLAXIS
     Dosage: 200 MG, QD
     Route: 048
     Dates: start: 20090626
  4. SERMION                            /00396401/ [Concomitant]
     Indication: THROMBOSIS PROPHYLAXIS
     Dosage: 2 DF, QD
     Route: 048
     Dates: start: 20120523
  5. PANUS [Concomitant]
     Indication: THROMBOSIS PROPHYLAXIS
     Dosage: 3 DF, QD
     Route: 048
     Dates: start: 20130813
  6. NEUSILIN [Concomitant]
     Indication: PROPHYLAXIS AGAINST GASTROINTESTINAL ULCER
     Dosage: 1500 MG, QD
     Route: 048
     Dates: start: 20130611

REACTIONS (1)
  - Cerebral haemorrhage [Recovered/Resolved]
